FAERS Safety Report 9570727 (Version 1)
Quarter: 2013Q3

REPORT INFORMATION
  Report Type: Spontaneous
  Country: US (occurrence: None)
  Receive Date: 20130926
  Receipt Date: 20130926
  Transmission Date: 20140515
  Serious: Yes (Disabling)
  Sender: FDA-Public Use
  Company Number: None

PATIENT
  Age: 64 Year
  Sex: Female
  Weight: 79.38 kg

DRUGS (2)
  1. LEVAQUIN [Suspect]
     Dates: start: 20070301, end: 20081208
  2. CIPRO [Suspect]
     Dates: start: 20070301, end: 20081208

REACTIONS (6)
  - Pain [None]
  - Hypoaesthesia [None]
  - Paraesthesia [None]
  - Headache [None]
  - Nasal congestion [None]
  - Eye discharge [None]
